FAERS Safety Report 15200399 (Version 1)
Quarter: 2018Q3

REPORT INFORMATION
  Report Type: Spontaneous
  Country: DE (occurrence: DE)
  Receive Date: 20180726
  Receipt Date: 20180726
  Transmission Date: 20181010
  Serious: Yes (Other)
  Sender: FDA-Public Use
  Company Number: DE-HORMOSAN-2018-00529

PATIENT
  Sex: Male

DRUGS (1)
  1. LAMOTRIGIN?HORMOSAN 50 MG DISPERS [Suspect]
     Active Substance: LAMOTRIGINE
     Indication: EPILEPSY
     Dosage: 150 MG, QD
     Route: 048

REACTIONS (2)
  - Epilepsy [Unknown]
  - Drug ineffective [Unknown]
